FAERS Safety Report 6321945-1 (Version None)
Quarter: 2009Q3

REPORT INFORMATION
  Report Type: 
  Country: None (occurrence: None)
  Receive Date: 20090821
  Receipt Date: 20090821
  Transmission Date: 20100115
  Serious: Yes (Congenital Anomaly, Other)
  Sender: FDA-Public Use
  Company Number: None

PATIENT
  Age: 65 Year
  Sex: Female
  Weight: 109.0901 kg

DRUGS (1)
  1. AZITHROMYCIN [Suspect]
     Indication: ANTIBIOTIC THERAPY
     Dosage: 250 MG ONE A DAY, 2 WKS AGO

REACTIONS (1)
  - VISION BLURRED [None]
